FAERS Safety Report 17678970 (Version 1)
Quarter: 2020Q2

REPORT INFORMATION
  Report Type: Spontaneous
  Country: US (occurrence: US)
  Receive Date: 20200417
  Receipt Date: 20200417
  Transmission Date: 20200714
  Serious: Yes (Disabling, Other)
  Sender: FDA-Public Use
  Company Number: US-ELI_LILLY_AND_COMPANY-US202004002388

PATIENT
  Sex: Female

DRUGS (2)
  1. NEURONTIN [Suspect]
     Active Substance: GABAPENTIN
     Indication: NEUROPATHY PERIPHERAL
     Dosage: UNK, UNKNOWN
     Route: 065
     Dates: start: 1999
  2. HUMALOG [Suspect]
     Active Substance: INSULIN LISPRO
     Indication: PRODUCT USED FOR UNKNOWN INDICATION
     Dosage: UNK, UNKNOWN
     Route: 058
     Dates: start: 2000

REACTIONS (16)
  - Neuropathy peripheral [Unknown]
  - Concussion [Unknown]
  - Bladder disorder [Unknown]
  - Retinopathy [Unknown]
  - Balance disorder [Unknown]
  - Blood glucose abnormal [Unknown]
  - Expired product administered [Unknown]
  - Carpal tunnel syndrome [Unknown]
  - Fall [Unknown]
  - Autonomic nervous system imbalance [Unknown]
  - Blood pressure abnormal [Unknown]
  - Trigger finger [Unknown]
  - Breast cancer [Unknown]
  - Corneal scar [Unknown]
  - Visual field defect [Unknown]
  - Gastrointestinal motility disorder [Unknown]

NARRATIVE: CASE EVENT DATE: 2006
